FAERS Safety Report 15666069 (Version 4)
Quarter: 2019Q1

REPORT INFORMATION
  Report Type: Spontaneous
  Country: ES (occurrence: ES)
  Receive Date: 20181128
  Receipt Date: 20190213
  Transmission Date: 20190417
  Serious: Yes (Other)
  Sender: FDA-Public Use
  Company Number: PHHY2018ES109869

PATIENT
  Age: 46 Year
  Sex: Male

DRUGS (4)
  1. PREDNISONE. [Suspect]
     Active Substance: PREDNISONE
     Indication: DERMATOMYOSITIS
     Dosage: 70 MG, QD (CUMULATIVE DOSE:14.85 G) (MISUSE
     Route: 065
  2. METHOTREXATE. [Suspect]
     Active Substance: METHOTREXATE
     Indication: IMMUNOSUPPRESSANT DRUG THERAPY
  3. PREDNISONE. [Suspect]
     Active Substance: PREDNISONE
     Indication: IMMUNOSUPPRESSANT DRUG THERAPY
  4. METHOTREXATE. [Suspect]
     Active Substance: METHOTREXATE
     Indication: DERMATOMYOSITIS
     Dosage: (MISUSE)
     Route: 065

REACTIONS (5)
  - Pneumocystis jirovecii infection [Recovered/Resolved with Sequelae]
  - Opportunistic infection [Unknown]
  - Product use in unapproved indication [Unknown]
  - Dyspnoea [Recovered/Resolved with Sequelae]
  - Off label use [Unknown]
